FAERS Safety Report 23950365 (Version 1)
Quarter: 2024Q2

REPORT INFORMATION
  Report Type: Spontaneous
  Country: US (occurrence: US)
  Receive Date: 20240607
  Receipt Date: 20240607
  Transmission Date: 20240716
  Serious: No
  Sender: FDA-Public Use
  Company Number: US-009507513-2406USA001861

PATIENT
  Sex: Female

DRUGS (7)
  1. JANUVIA [Suspect]
     Active Substance: SITAGLIPTIN PHOSPHATE
     Dosage: 100 MG
     Route: 048
     Dates: end: 20240524
  2. ALLOPURINOL [Concomitant]
     Active Substance: ALLOPURINOL
  3. GLIMEPIRIDE [Concomitant]
     Active Substance: GLIMEPIRIDE
  4. METOPROLOL [Concomitant]
     Active Substance: METOPROLOL
  5. LISINOPRIL [Concomitant]
     Active Substance: LISINOPRIL
  6. ROSUVASTATIN [Concomitant]
     Active Substance: ROSUVASTATIN
  7. HYDROCHLOROTHIAZIDE [Concomitant]
     Active Substance: HYDROCHLOROTHIAZIDE

REACTIONS (5)
  - Dizziness [Not Recovered/Not Resolved]
  - Blood pressure abnormal [Not Recovered/Not Resolved]
  - Dyspnoea [Not Recovered/Not Resolved]
  - Fatigue [Not Recovered/Not Resolved]
  - Product dose omission issue [Unknown]

NARRATIVE: CASE EVENT DATE: 20240101
